FAERS Safety Report 19900908 (Version 1)
Quarter: 2021Q3

REPORT INFORMATION
  Report Type: Spontaneous
  Country: US (occurrence: US)
  Receive Date: 20210930
  Receipt Date: 20210930
  Transmission Date: 20211014
  Serious: Yes (Hospitalization)
  Sender: FDA-Public Use
  Company Number: None

PATIENT
  Age: 79 Year
  Sex: Male
  Weight: 68.7 kg

DRUGS (1)
  1. REGEN?COV [Suspect]
     Active Substance: CASIRIVIMAB\IMDEVIMAB
     Indication: COVID-19
     Route: 041
     Dates: start: 20210929, end: 20210929

REACTIONS (3)
  - Dizziness [None]
  - Tremor [None]
  - Dyspnoea [None]

NARRATIVE: CASE EVENT DATE: 20210929
